FAERS Safety Report 8777390 (Version 1)
Quarter: 2012Q4

REPORT INFORMATION
  Report Type: 
  Country: US (occurrence: US)
  Receive Date: 20120911
  Receipt Date: 20120911
  Transmission Date: 20130627
  Serious: Yes (Other)
  Sender: FDA-Public Use
  Company Number: US-JNJFOC-20120902291

PATIENT
  Sex: Female

DRUGS (1)
  1. BENADRYL [Suspect]
     Indication: SEASONAL ALLERGY
     Route: 048

REACTIONS (4)
  - Disorientation [Recovered/Resolved]
  - Asthenia [Recovered/Resolved]
  - Therapeutic response increased [Unknown]
  - Product quality issue [None]
